FAERS Safety Report 21883760 (Version 1)
Quarter: 2023Q1

REPORT INFORMATION
  Report Type: Spontaneous
  Country: US (occurrence: US)
  Receive Date: 20230119
  Receipt Date: 20230119
  Transmission Date: 20230418
  Serious: Yes (Hospitalization)
  Sender: FDA-Public Use
  Company Number: US-STRIDES ARCOLAB LIMITED-2022SP003117

PATIENT
  Sex: Male

DRUGS (15)
  1. PREDNISOLONE [Suspect]
     Active Substance: PREDNISOLONE
     Indication: Granulomatosis with polyangiitis
     Dosage: 7.5-20 MG OF PREDNISONE PER DAY AT THE TIME OF HOSPITALISATION
     Route: 065
  2. PREDNISOLONE [Suspect]
     Active Substance: PREDNISOLONE
     Indication: Babesiosis
     Dosage: 7.5 MILLIGRAM
     Route: 065
  3. METHOTREXATE [Suspect]
     Active Substance: METHOTREXATE
     Indication: Granulomatosis with polyangiitis
     Dosage: UNK TREATMENT COMPLETED
     Route: 065
  4. CYCLOPHOSPHAMIDE [Suspect]
     Active Substance: CYCLOPHOSPHAMIDE
     Indication: Granulomatosis with polyangiitis
     Dosage: UNK TREATMENT COMPLETED
     Route: 065
  5. RITUXIMAB [Suspect]
     Active Substance: RITUXIMAB
     Indication: Granulomatosis with polyangiitis
     Dosage: UNK RECEIVED TWO DOSES OF RITUXIMAB; THE LAST OF WHICH WAS ADMINISTERED IN JANUARY OF 2017.
     Route: 065
     Dates: end: 201701
  6. AZITHROMYCIN [Suspect]
     Active Substance: AZITHROMYCIN
     Indication: Babesiosis
     Dosage: 500 MILLIGRAM, TOTAL
     Route: 042
     Dates: start: 20190109, end: 20190109
  7. AZITHROMYCIN [Suspect]
     Active Substance: AZITHROMYCIN
     Dosage: 500 MILLIGRAM, QD TREATMENT COMPLETED AND WAS RE-STARTED DUE TO RELAPSE)
     Route: 048
     Dates: start: 201901, end: 201901
  8. AZITHROMYCIN [Suspect]
     Active Substance: AZITHROMYCIN
     Dosage: 250 MILLIGRAM, QD
     Route: 048
     Dates: start: 201901, end: 201901
  9. AZITHROMYCIN [Suspect]
     Active Substance: AZITHROMYCIN
     Dosage: 500 MILLIGRAM, QD
     Route: 048
     Dates: start: 2019, end: 2019
  10. AZITHROMYCIN [Suspect]
     Active Substance: AZITHROMYCIN
     Dosage: 500 MILLIGRAM, BID
     Route: 048
     Dates: start: 20190828
  11. AZITHROMYCIN [Suspect]
     Active Substance: AZITHROMYCIN
     Dosage: 1000 MILLIGRAM PER DAY
     Route: 048
     Dates: start: 20200129
  12. ATOVAQUONE [Suspect]
     Active Substance: ATOVAQUONE
     Indication: Babesiosis
     Dosage: 750 MILLIGRAM, QD
     Route: 048
     Dates: start: 20190109, end: 2019
  13. ATOVAQUONE [Suspect]
     Active Substance: ATOVAQUONE
     Dosage: 750 MILLIGRAM, BID
     Route: 048
     Dates: start: 2019, end: 2019
  14. ATOVAQUONE [Suspect]
     Active Substance: ATOVAQUONE
     Dosage: 750 MILLIGRAM, BID RESTARTED
     Route: 048
     Dates: start: 20190828
  15. ATOVAQUONE [Suspect]
     Active Substance: ATOVAQUONE
     Dosage: 750 MILLIGRAM, QD
     Route: 048

REACTIONS (3)
  - Babesiosis [Recovered/Resolved]
  - Disease recurrence [Recovered/Resolved]
  - Off label use [Unknown]

NARRATIVE: CASE EVENT DATE: 20190101
